FAERS Safety Report 16678152 (Version 2)
Quarter: 2019Q3

REPORT INFORMATION
  Report Type: Spontaneous
  Country: TW (occurrence: TW)
  Receive Date: 20190807
  Receipt Date: 20190813
  Transmission Date: 20191004
  Serious: Yes (Hospitalization, Other)
  Sender: FDA-Public Use
  Company Number: TW-PFIZER INC-2019334364

PATIENT
  Age: 75 Year
  Sex: Male

DRUGS (4)
  1. SERTRALINE HCL [Suspect]
     Active Substance: SERTRALINE HYDROCHLORIDE
     Indication: DEPRESSION
     Dosage: 50 MG, 1X/DAY
     Dates: start: 2014
  2. SERTRALINE HCL [Suspect]
     Active Substance: SERTRALINE HYDROCHLORIDE
     Indication: PERSISTENT DEPRESSIVE DISORDER
  3. LORAZEPAM. [Suspect]
     Active Substance: LORAZEPAM
     Indication: PERSISTENT DEPRESSIVE DISORDER
     Dosage: 1 MG, 1X/DAY
     Dates: start: 2014
  4. AMLODIPINE [Concomitant]
     Active Substance: AMLODIPINE BESYLATE
     Indication: HYPERTENSION
     Dosage: 5 MG, 1X/DAY

REACTIONS (1)
  - Creutzfeldt-Jakob disease [Recovering/Resolving]

NARRATIVE: CASE EVENT DATE: 2014
